FAERS Safety Report 21898372 (Version 2)
Quarter: 2023Q1

REPORT INFORMATION
  Report Type: Spontaneous
  Country: PL (occurrence: None)
  Receive Date: 20230123
  Receipt Date: 20230202
  Transmission Date: 20230417
  Serious: Yes (Other)
  Sender: FDA-Public Use
  Company Number: PL-ROCHE-3266362

PATIENT
  Age: 72 Year
  Sex: Female

DRUGS (1)
  1. HERCEPTIN [Suspect]
     Active Substance: TRASTUZUMAB
     Indication: HER2 positive breast cancer
     Dosage: 18 CYCLES OF HERCEPTIN
     Route: 065

REACTIONS (3)
  - Hypersensitivity [Recovered/Resolved]
  - Neoplasm [Recovered/Resolved]
  - Retching [Recovered/Resolved]
